FAERS Safety Report 23016295 (Version 1)
Quarter: 2023Q4

REPORT INFORMATION
  Report Type: Spontaneous
  Country: CN (occurrence: None)
  Receive Date: 20231002
  Receipt Date: 20231002
  Transmission Date: 20240110
  Serious: Yes (Other)
  Sender: FDA-Public Use
  Company Number: CN-ROCHE-3429678

PATIENT
  Age: 67 Year
  Sex: Male
  Weight: 62.5 kg

DRUGS (4)
  1. HERCEPTIN [Suspect]
     Active Substance: TRASTUZUMAB
     Indication: Gastric cancer
     Route: 041
     Dates: start: 20230424, end: 20230424
  2. XELODA [Suspect]
     Active Substance: CAPECITABINE
     Indication: Gastric cancer
     Dosage: D1-14, 21 DAYS AS A CYCLE
     Route: 048
     Dates: start: 20230424
  3. OXALIPLATIN [Concomitant]
     Active Substance: OXALIPLATIN
     Indication: Gastric cancer
     Dosage: D1
     Dates: start: 20230424
  4. SINTILIMAB [Concomitant]
     Active Substance: SINTILIMAB
     Indication: Gastric cancer
     Dosage: D1
     Dates: start: 20230424

REACTIONS (1)
  - Anaphylactoid reaction [Recovering/Resolving]

NARRATIVE: CASE EVENT DATE: 20230424
